FAERS Safety Report 5965551-7 (Version None)
Quarter: 2008Q4

REPORT INFORMATION
  Report Type: 
  Country: None (occurrence: None)
  Receive Date: 20081119
  Receipt Date: 20080324
  Transmission Date: 20090506
  Serious: Yes (Other)
  Sender: FDA-Public Use
  Company Number: 46531

PATIENT
  Age: 10 Year
  Sex: Female

DRUGS (1)
  1. CYCLOSPORINE [Suspect]

REACTIONS (1)
  - DEPRESSION [None]
